FAERS Safety Report 13824161 (Version 1)
Quarter: 2017Q3

REPORT INFORMATION
  Report Type: Spontaneous
  Country: JP (occurrence: JP)
  Receive Date: 20170802
  Receipt Date: 20170802
  Transmission Date: 20171127
  Serious: Yes (Hospitalization, Other)
  Sender: FDA-Public Use
  Company Number: JP-ACCORD-056555

PATIENT
  Age: 83 Year
  Sex: Male
  Weight: 66 kg

DRUGS (2)
  1. CISPLATIN. [Suspect]
     Active Substance: CISPLATIN
     Indication: HEPATOCELLULAR CARCINOMA
     Dosage: ALSO RECEIVED CDDP 20 MG + LIPIODOL 2.0 ML
     Route: 013
  2. ETHIODIZED OIL [Concomitant]
     Active Substance: ETHIODIZED OIL

REACTIONS (2)
  - Disseminated intravascular coagulation [Recovering/Resolving]
  - Thrombotic microangiopathy [Recovering/Resolving]
